FAERS Safety Report 23386116 (Version 3)
Quarter: 2024Q1

REPORT INFORMATION
  Report Type: Report from Study
  Country: US (occurrence: US)
  Receive Date: 20240110
  Receipt Date: 20240311
  Transmission Date: 20240409
  Serious: Yes (Other)
  Sender: FDA-Public Use
  Company Number: US-ABBVIE-5578165

PATIENT
  Age: 39 Year
  Sex: Female

DRUGS (2)
  1. RINVOQ [Suspect]
     Active Substance: UPADACITINIB
     Indication: Psoriatic arthropathy
     Route: 048
     Dates: start: 202309
  2. RINVOQ [Suspect]
     Active Substance: UPADACITINIB
     Indication: Psoriatic arthropathy
     Dosage: DRUG END DATE- 2023
     Route: 048
     Dates: start: 20230303

REACTIONS (4)
  - Meniscopathy [Unknown]
  - Weight increased [Unknown]
  - Weight increased [Recovered/Resolved]
  - Joint noise [Unknown]

NARRATIVE: CASE EVENT DATE: 20231201
